FAERS Safety Report 10245699 (Version 1)
Quarter: 2014Q2

REPORT INFORMATION
  Report Type: Report from Study
  Country: US (occurrence: US)
  Receive Date: 20140619
  Receipt Date: 20140619
  Transmission Date: 20141212
  Serious: Yes (Other)
  Sender: FDA-Public Use
  Company Number: US-ROCHE-1418101

PATIENT
  Sex: Male
  Weight: 27.5 kg

DRUGS (4)
  1. SOMATROPIN [Suspect]
     Indication: RENAL FAILURE CHRONIC
     Route: 065
  2. VASOTEC [Concomitant]
  3. K-PHOS ORIGINAL [Concomitant]
  4. SODIUM BICARBONATE [Concomitant]

REACTIONS (4)
  - Haemoglobin decreased [Unknown]
  - Delayed puberty [Unknown]
  - Muscle spasms [Unknown]
  - Burning sensation [Unknown]
